FAERS Safety Report 4786385-5 (Version None)
Quarter: 2005Q3

REPORT INFORMATION
  Report Type: 
  Country: None (occurrence: None)
  Receive Date: 20050914
  Receipt Date: 20050214
  Transmission Date: 20060218
  Serious: Yes (Death)
  Sender: FDA-Public Use
  Company Number: 163-20785-05020260

PATIENT
  Age: 63 Year
  Sex: Male

DRUGS (1)
  1. THALOMID [Suspect]
     Indication: MULTIPLE MYELOMA
     Dosage: 300 MG, DAILY, ORAL
     Route: 048
     Dates: start: 20041124, end: 20050111

REACTIONS (2)
  - DEATH [None]
  - MYOCARDIAL INFARCTION [None]
